FAERS Safety Report 7360673-0 (Version None)
Quarter: 2011Q1

REPORT INFORMATION
  Report Type: 
  Country: None (occurrence: None)
  Receive Date: 20110315
  Receipt Date: 20110315
  Transmission Date: 20110831
  Serious: Yes (Other)
  Sender: FDA-Public Use
  Company Number: None

PATIENT
  Sex: Female
  Weight: 108.8633 kg

DRUGS (3)
  1. WELLBUTRIN [Concomitant]
  2. PROZAC [Concomitant]
  3. CYMBALTA [Suspect]
     Indication: DEPRESSION
     Dosage: 1 CAPLET DAILY PO
     Route: 048
     Dates: start: 20060101, end: 20110306

REACTIONS (8)
  - NAUSEA [None]
  - FATIGUE [None]
  - IRRITABILITY [None]
  - PAIN [None]
  - INSOMNIA [None]
  - DIZZINESS [None]
  - FEELING OF BODY TEMPERATURE CHANGE [None]
  - DRUG WITHDRAWAL SYNDROME [None]
